FAERS Safety Report 4469428-8 (Version None)
Quarter: 2004Q4

REPORT INFORMATION
  Report Type: 
  Country: None (occurrence: None)
  Receive Date: 20041008
  Receipt Date: 20040811
  Transmission Date: 20050328
  Serious: No
  Sender: FDA-Public Use
  Company Number: US-BRISTOL-MYERS SQUIBB COMPANY-12667192

PATIENT
  Age: 80 Year
  Sex: Male
  Weight: 75 kg

DRUGS (1)
  1. AVAPRO [Suspect]
     Indication: HYPERTENSION
     Dosage: STOPPED ON 21-JUL-2004 OR 22-JUL-2004.
     Route: 048
     Dates: start: 20040716, end: 20040701

REACTIONS (10)
  - ABDOMINAL PAIN UPPER [None]
  - BEDRIDDEN [None]
  - FATIGUE [None]
  - FLATULENCE [None]
  - HEADACHE [None]
  - ORAL MUCOSAL BLISTERING [None]
  - PHARYNGOLARYNGEAL PAIN [None]
  - SOMNOLENCE [None]
  - URTICARIA [None]
  - VOMITING [None]
